FAERS Safety Report 18829332 (Version 1)
Quarter: 2021Q1

REPORT INFORMATION
  Report Type: Spontaneous
  Country: US (occurrence: US)
  Receive Date: 20210201
  Receipt Date: 20210201
  Transmission Date: 20210419
  Serious: No
  Sender: FDA-Public Use
  Company Number: US-ABBVIE-20K-163-3576669-00

PATIENT
  Age: 59 Year
  Sex: Female
  Weight: 68.1 kg

DRUGS (5)
  1. FOLIC ACID. [Concomitant]
     Active Substance: FOLIC ACID
     Indication: SUPPLEMENTATION THERAPY
  2. METHOTREXATE. [Concomitant]
     Active Substance: METHOTREXATE
     Indication: SYSTEMIC LUPUS ERYTHEMATOSUS
  3. LEFLUNOMIDE. [Concomitant]
     Active Substance: LEFLUNOMIDE
     Indication: SYSTEMIC LUPUS ERYTHEMATOSUS
  4. HYDROXYCHLOROQUINE [Concomitant]
     Active Substance: HYDROXYCHLOROQUINE
     Indication: SYSTEMIC LUPUS ERYTHEMATOSUS
  5. HUMIRA [Suspect]
     Active Substance: ADALIMUMAB
     Indication: SYSTEMIC LUPUS ERYTHEMATOSUS
     Route: 058
     Dates: start: 201911

REACTIONS (6)
  - Off label use [Not Recovered/Not Resolved]
  - Injection site pain [Recovered/Resolved]
  - Device issue [Unknown]
  - Injection site bruising [Recovered/Resolved]
  - Injection site haemorrhage [Recovered/Resolved]
  - Unevaluable event [Recovered/Resolved]

NARRATIVE: CASE EVENT DATE: 201911
